FAERS Safety Report 4413142-1 (Version None)
Quarter: 2004Q3

REPORT INFORMATION
  Report Type: 
  Country: None (occurrence: None)
  Receive Date: 20040802
  Receipt Date: 20040720
  Transmission Date: 20050211
  Serious: Yes (Hospitalization, Other)
  Sender: FDA-Public Use
  Company Number: US-AMGEN-US084338

PATIENT

DRUGS (13)
  1. SENSIPAR [Suspect]
     Indication: HYPERPARATHYROIDISM SECONDARY
     Route: 048
     Dates: start: 20040616
  2. ZOCOR [Concomitant]
     Dates: end: 20040707
  3. EPOGEN [Concomitant]
  4. ALTACE [Concomitant]
  5. NORVASC [Concomitant]
  6. ASPIRIN [Concomitant]
  7. PLAVIX [Concomitant]
  8. DIAZEPAM [Concomitant]
  9. FOLIC ACID [Concomitant]
  10. PREVACID [Concomitant]
  11. LOPRESSOR [Concomitant]
  12. RENAGEL [Concomitant]
  13. IMDUR [Concomitant]

REACTIONS (4)
  - ALANINE AMINOTRANSFERASE INCREASED [None]
  - ASPARTATE AMINOTRANSFERASE INCREASED [None]
  - HEPATIC ENZYME INCREASED [None]
  - JUGULAR VEIN THROMBOSIS [None]
